FAERS Safety Report 24699299 (Version 1)
Quarter: 2024Q4

REPORT INFORMATION
  Report Type: Spontaneous
  Country: RO (occurrence: RO)
  Receive Date: 20241205
  Receipt Date: 20241205
  Transmission Date: 20250114
  Serious: Yes (Other)
  Sender: CELLTRION
  Company Number: RO-ABBVIE-5774003

PATIENT

DRUGS (5)
  1. INFLIXIMAB [Suspect]
     Active Substance: INFLIXIMAB
     Indication: Product used for unknown indication
     Dosage: 120 MG, Q2WEEKS
     Route: 065
     Dates: start: 202211, end: 202302
  2. INFLIXIMAB [Suspect]
     Active Substance: INFLIXIMAB
     Dosage: 5MG/KGC
     Route: 065
     Dates: start: 20181004, end: 20181116
  3. SECUKINUMAB [Suspect]
     Active Substance: SECUKINUMAB
     Indication: Product used for unknown indication
     Dosage: 150 MG, MONTHLY
     Route: 065
     Dates: start: 201904
  4. SECUKINUMAB [Suspect]
     Active Substance: SECUKINUMAB
     Dosage: 300 MG, MONTHLY
     Route: 065
     Dates: start: 202103, end: 202108
  5. ADALIMUMAB [Suspect]
     Active Substance: ADALIMUMAB
     Indication: Ankylosing spondylitis
     Dosage: 40 MG, Q2WEEKS
     Route: 058
     Dates: start: 20140714, end: 20170714

REACTIONS (13)
  - Multisystem inflammatory syndrome [Unknown]
  - Multisystem inflammatory syndrome [Unknown]
  - Hepatic cytolysis [Unknown]
  - Body fat disorder [Unknown]
  - Localised oedema [Unknown]
  - Mucosal ulceration [Unknown]
  - Gastrointestinal motility disorder [Unknown]
  - Gastritis [Unknown]
  - Back pain [Unknown]
  - Pain [Unknown]
  - Inflammation [Unknown]
  - Inflammation [Unknown]
  - Drug ineffective [Unknown]

NARRATIVE: CASE EVENT DATE: 20201201
